FAERS Safety Report 7992241-1 (Version None)
Quarter: 2011Q4

REPORT INFORMATION
  Report Type: 
  Country: None (occurrence: None)
  Receive Date: 20111219
  Receipt Date: 20110128
  Transmission Date: 20120403
  Serious: No
  Sender: FDA-Public Use
  Company Number: US-ASTRAZENECA-2011SE05058

PATIENT
  Age: 863 Month
  Sex: Male
  Weight: 80.7 kg

DRUGS (6)
  1. PREDNISONE TAB [Concomitant]
  2. FOLIC ACID [Concomitant]
  3. METHYLTRESATE [Concomitant]
  4. CRESTOR [Suspect]
     Indication: BLOOD CHOLESTEROL INCREASED
     Route: 048
     Dates: start: 20101001
  5. ATENOLOL [Concomitant]
  6. EXFORGE [Concomitant]

REACTIONS (3)
  - PRURITUS [None]
  - SCAB [None]
  - INSOMNIA [None]
